FAERS Safety Report 23870779 (Version 1)
Quarter: 2024Q2

REPORT INFORMATION
  Report Type: Report from Study
  Country: US (occurrence: US)
  Receive Date: 20240518
  Receipt Date: 20240518
  Transmission Date: 20240715
  Serious: Yes (Hospitalization)
  Sender: FDA-Public Use
  Company Number: US-ABBVIE-5764190

PATIENT
  Age: 56 Year
  Sex: Female
  Weight: 79.378 kg

DRUGS (2)
  1. SYNTHROID [Suspect]
     Active Substance: LEVOTHYROXINE SODIUM
     Indication: Hypothyroidism
     Dosage: FORM STRENGTH: 112 MICROGRAM
     Route: 048
     Dates: start: 2003, end: 202312
  2. SYNTHROID [Suspect]
     Active Substance: LEVOTHYROXINE SODIUM
     Indication: Hypothyroidism
     Dosage: FORM STRENGTH: 137 MICROGRAM
     Route: 048
     Dates: start: 202401

REACTIONS (5)
  - Lumbar vertebral fracture [Not Recovered/Not Resolved]
  - Amnesia [Not Recovered/Not Resolved]
  - Hypersomnia [Not Recovered/Not Resolved]
  - Disorientation [Not Recovered/Not Resolved]
  - Limb injury [Recovered/Resolved]

NARRATIVE: CASE EVENT DATE: 20230301
